FAERS Safety Report 8263666-4 (Version None)
Quarter: 2012Q2

REPORT INFORMATION
  Report Type: 
  Country: None (occurrence: None)
  Receive Date: 20120405
  Receipt Date: 20120323
  Transmission Date: 20120825
  Serious: Yes (Hospitalization)
  Sender: FDA-Public Use
  Company Number: NO-ROCHE-1047120

PATIENT
  Sex: Male

DRUGS (4)
  1. MABTHERA [Suspect]
     Indication: WALDENSTROM'S MACROGLOBULINAEMIA
     Dosage: 1. DOSE 230 MG, 2. DOSE 690 MG
     Route: 051
     Dates: start: 20111122, end: 20111215
  2. CYCLOPHOSPHAMIDE [Concomitant]
     Indication: WALDENSTROM'S MACROGLOBULINAEMIA
     Route: 051
     Dates: start: 20111122, end: 20111122
  3. VINCRISTINE [Suspect]
     Indication: WALDENSTROM'S MACROGLOBULINAEMIA
     Route: 051
     Dates: start: 20111122, end: 20111215
  4. PREDNISOLONE [Concomitant]

REACTIONS (9)
  - NEURITIS [None]
  - NASAL CONGESTION [None]
  - EAR DISCOMFORT [None]
  - ABDOMINAL PAIN [None]
  - BREAST DISCOMFORT [None]
  - CHILLS [None]
  - POLYNEUROPATHY [None]
  - OEDEMA MOUTH [None]
  - RADICULITIS BRACHIAL [None]
